FAERS Safety Report 6725649-2 (Version None)
Quarter: 2010Q2

REPORT INFORMATION
  Report Type: 
  Country: None (occurrence: None)
  Receive Date: 20100514
  Receipt Date: 20100507
  Transmission Date: 20101027
  Serious: Yes (Other)
  Sender: FDA-Public Use
  Company Number: CA-ROCHE-702244

PATIENT
  Sex: Female
  Weight: 65 kg

DRUGS (1)
  1. BEVACIZUMAB [Suspect]
     Indication: BREAST CANCER
     Route: 042
     Dates: start: 20100203

REACTIONS (1)
  - NEOPLASM SKIN [None]
